FAERS Safety Report 16817701 (Version 2)
Quarter: 2019Q3

REPORT INFORMATION
  Report Type: Spontaneous
  Country: US (occurrence: US)
  Receive Date: 20190917
  Receipt Date: 20190930
  Transmission Date: 20191005
  Serious: No
  Sender: FDA-Public Use
  Company Number: US-PFIZER INC-2015268211

PATIENT
  Age: 65 Year
  Sex: Female

DRUGS (16)
  1. ABILIFY [Concomitant]
     Active Substance: ARIPIPRAZOLE
     Dosage: 2 MG, 1X/DAY(1 TAB EVERY MORNING); 0 REFILLS
     Dates: start: 20150627
  2. LEXAPRO [Concomitant]
     Active Substance: ESCITALOPRAM OXALATE
     Indication: ANTIDEPRESSANT THERAPY
     Dosage: 20 MG, 1X/DAY(1 TAB EVERY MORNING); 0 REFILLS
     Dates: start: 20150512
  3. LOMOTIL [Concomitant]
     Active Substance: ATROPINE SULFATE\DIPHENOXYLATE HYDROCHLORIDE
     Indication: IRRITABLE BOWEL SYNDROME
     Dosage: 2.5 MG, AS NEEDED (1 TAB EVERY 6 HOURS); 0 REFILL
  4. PROAIR HFA [Concomitant]
     Active Substance: ALBUTEROL SULFATE
     Dosage: UNK UNK, AS NEEDED; [90 MCG- 2 PUFFS TWICE DAILY]; 2 REFILLS
  5. SPIRIVA [Concomitant]
     Active Substance: TIOTROPIUM BROMIDE MONOHYDRATE
     Dosage: UNK, DAILY; [1 DOSE PER DAY]
  6. ATIVAN [Concomitant]
     Active Substance: LORAZEPAM
     Indication: ANXIETY
     Dosage: 1 MG, 2X/DAY; 0 REFILLS
  7. LASIX [Concomitant]
     Active Substance: FUROSEMIDE
     Indication: OEDEMA
     Dosage: 40 MG, 2X/DAY(MORNING AND NOON); 1 REFILL
     Dates: start: 20150501
  8. ZOCOR [Concomitant]
     Active Substance: SIMVASTATIN
     Indication: BLOOD CHOLESTEROL ABNORMAL
     Dosage: 40 MG, 1X/DAY(1 TAB AT BEDTIME); 11 REFILLS
  9. NICOTROL [Suspect]
     Active Substance: NICOTINE
     Dosage: UNK; [16 CARTRIDGES A DAY]
  10. LOTENSIN [Concomitant]
     Active Substance: BENAZEPRIL HYDROCHLORIDE
     Indication: BLOOD PRESSURE ABNORMAL
     Dosage: 10 MG, 1X/DAY(MORNING); 3 REFILLS
     Dates: start: 20150416
  11. NITRO [Concomitant]
     Active Substance: NITROGLYCERIN
     Dosage: 0.4 MG, AS NEEDED
  12. NICOTROL [Suspect]
     Active Substance: NICOTINE
     Dosage: UNK; [2 SPRAYS IN EACH NOSTRIL 1-2 TIMES PER HOUR]
     Route: 045
  13. LORAZEPAM. [Concomitant]
     Active Substance: LORAZEPAM
     Dosage: 1 MG, 2X/DAY
  14. TRAMADOL HCL [Concomitant]
     Active Substance: TRAMADOL HYDROCHLORIDE
     Indication: PAIN
     Dosage: 50 MG, AS NEEDED; [50 MG, 1 TAB EVERY 8 HOURS]
  15. PROVENTIL [Concomitant]
     Active Substance: ALBUTEROL
     Dosage: UNK UNK, AS NEEDED
  16. METFORMIN HYDROCHLORIDE. [Concomitant]
     Active Substance: METFORMIN HYDROCHLORIDE
     Indication: DIABETES MELLITUS
     Dosage: 1000 MG, 2X/DAY; 4 REFILLS
     Dates: start: 20150501, end: 20150509

REACTIONS (1)
  - Seasonal allergy [Unknown]
